FAERS Safety Report 8512962-1 (Version None)
Quarter: 2012Q3

REPORT INFORMATION
  Report Type: 
  Country: None (occurrence: None)
  Receive Date: 20120716
  Receipt Date: 20120705
  Transmission Date: 20120928
  Serious: Yes (Other)
  Sender: FDA-Public Use
  Company Number: JP-VERTEX PHARMACEUTICALS INC.-AE-2012-010111

PATIENT
  Age: 62 Year
  Sex: Male

DRUGS (13)
  1. TELAVIC (TELAPREVIR) [Suspect]
     Route: 048
     Dates: end: 20120603
  2. HUMALOG [Concomitant]
     Route: 058
  3. TELAVIC (TELAPREVIR) [Suspect]
     Indication: HEPATITIS C
     Route: 048
     Dates: start: 20120410
  4. RIBAVIRIN [Concomitant]
     Indication: HEPATITIS C
     Route: 048
     Dates: start: 20120410, end: 20120501
  5. JANUVIA [Concomitant]
     Route: 048
  6. HUMALOG N [Concomitant]
     Route: 058
  7. BASEN [Concomitant]
     Route: 048
  8. PROMACTA [Concomitant]
     Route: 047
     Dates: start: 20120410
  9. TOUGHMAC E [Concomitant]
     Route: 048
     Dates: start: 20120410
  10. RIBAVIRIN [Concomitant]
     Route: 048
     Dates: start: 20120502
  11. PEGINTERFERON ALFA-2B [Concomitant]
     Indication: HEPATITIS C
     Route: 058
  12. TELAVIC (TELAPREVIR) [Suspect]
     Route: 048
     Dates: start: 20120604
  13. NEXIUM [Concomitant]
     Route: 048
     Dates: start: 20120620

REACTIONS (1)
  - RASH [None]
